FAERS Safety Report 21134750 (Version 2)
Quarter: 2022Q3

REPORT INFORMATION
  Report Type: Spontaneous
  Country: PT (occurrence: PT)
  Receive Date: 20220727
  Receipt Date: 20220902
  Transmission Date: 20221026
  Serious: Yes (Death, Life-Threatening, Hospitalization, Disabling)
  Sender: FDA-Public Use
  Company Number: None

PATIENT
  Age: 79 Year
  Sex: Female

DRUGS (1)
  1. MYFENAX [Suspect]
     Active Substance: MYCOPHENOLATE MOFETIL
     Indication: Hypersensitivity pneumonitis
     Dosage: 1500 MILLIGRAM DAILY; 1000MG IN THE MORNING + 500MG IN THE EVENING, UNIT DOSE AND STRENGTH : 500 MG,
     Dates: start: 20220208, end: 20220628

REACTIONS (1)
  - Meningitis cryptococcal [Fatal]

NARRATIVE: CASE EVENT DATE: 20220628
